FAERS Safety Report 8016055-1 (Version None)
Quarter: 2011Q4

REPORT INFORMATION
  Report Type: 
  Country: None (occurrence: None)
  Receive Date: 20111222
  Receipt Date: 20111222
  Transmission Date: 20120403
  Serious: Yes (Hospitalization)
  Sender: FDA-Public Use
  Company Number: None

PATIENT
  Sex: Female
  Weight: 69.4 kg

DRUGS (4)
  1. ZOFRAN [Concomitant]
  2. LIPITOR [Concomitant]
  3. TAXOL [Suspect]
     Dosage: 300 MG
     Dates: end: 20111215
  4. CARBOPLATIN [Suspect]
     Dosage: 425 MG
     Dates: end: 20111215

REACTIONS (12)
  - BLOOD CREATININE INCREASED [None]
  - LARGE INTESTINAL ULCER [None]
  - WHITE BLOOD CELL COUNT INCREASED [None]
  - INFREQUENT BOWEL MOVEMENTS [None]
  - ABDOMINAL PAIN [None]
  - COLITIS [None]
  - INTESTINAL ISCHAEMIA [None]
  - PSEUDOMEMBRANOUS COLITIS [None]
  - VOMITING [None]
  - COLONIC OBSTRUCTION [None]
  - INTESTINAL DILATATION [None]
  - ILEUS [None]
